FAERS Safety Report 24700875 (Version 1)
Quarter: 2024Q4

REPORT INFORMATION
  Report Type: Spontaneous
  Country: US (occurrence: None)
  Receive Date: 20241204
  Receipt Date: 20241204
  Transmission Date: 20250114
  Serious: No
  Sender: Public
  Company Number: None

PATIENT
  Age: 42 Year
  Sex: Female
  Weight: 96.16 kg

DRUGS (1)
  1. COSENTYX [Suspect]
     Active Substance: SECUKINUMAB
     Indication: Hidradenitis
     Dosage: FREQUENCY : WEEKLY;?INJECT 300 MG (2 SYRINGES 0 SUBCUTANEOUSLY ONCE  AWEEK FOR 5 WEEKS AS DIRECTED?
     Route: 058
     Dates: start: 202403

REACTIONS (2)
  - Ear infection [None]
  - Sinusitis [None]
